FAERS Safety Report 9423814 (Version 1)
Quarter: 2013Q3

REPORT INFORMATION
  Report Type: Spontaneous
  Country: CA (occurrence: CA)
  Receive Date: 20130729
  Receipt Date: 20130729
  Transmission Date: 20140515
  Serious: Yes (Other)
  Sender: FDA-Public Use
  Company Number: CA-AMGEN-CANSP2013050119

PATIENT
  Age: 78 Year
  Sex: Female

DRUGS (6)
  1. PROLIA [Suspect]
     Indication: OSTEOPOROSIS POSTMENOPAUSAL
     Dosage: 60 UNK, UNK
     Route: 058
  2. COUMADIN                           /00014802/ [Concomitant]
     Indication: ATRIAL FIBRILLATION
  3. VERAPAMIL [Concomitant]
     Dosage: 240 MG, QD
     Route: 048
  4. CRESTOR [Concomitant]
     Dosage: 5 MG, QD
     Route: 048
  5. TYLENOL                            /00020001/ [Concomitant]
     Dosage: 3 UNK, UNK
  6. VOLTAREN                           /00372301/ [Concomitant]
     Dosage: 75 MG, UNK

REACTIONS (3)
  - Pain [Unknown]
  - Mobility decreased [Unknown]
  - Compression fracture [Unknown]
